FAERS Safety Report 25936742 (Version 1)
Quarter: 2025Q4

REPORT INFORMATION
  Report Type: Spontaneous
  Country: CA (occurrence: CA)
  Receive Date: 20251017
  Receipt Date: 20251017
  Transmission Date: 20260118
  Serious: Yes (Hospitalization)
  Sender: SANDOZ
  Company Number: CA-SANDOZ-SDZ2025CA077130

PATIENT
  Sex: Female

DRUGS (4)
  1. CYCLOPHOSPHAMIDE [Suspect]
     Active Substance: CYCLOPHOSPHAMIDE
     Indication: Plasma cell myeloma
     Dosage: UNK
     Route: 065
  2. DEXAMETHASONE [Suspect]
     Active Substance: DEXAMETHASONE
     Indication: Plasma cell myeloma
     Dosage: UNK
     Route: 065
  3. IXAZOMIB [Suspect]
     Active Substance: IXAZOMIB
     Indication: Plasma cell myeloma
     Dosage: 4 MG
     Route: 048
  4. IXAZOMIB [Suspect]
     Active Substance: IXAZOMIB
     Dosage: 4 MG
     Route: 048

REACTIONS (3)
  - Infection [Recovering/Resolving]
  - Mastitis [Recovering/Resolving]
  - Off label use [Recovering/Resolving]
